FAERS Safety Report 8193547-6 (Version None)
Quarter: 2012Q1

REPORT INFORMATION
  Report Type: 
  Country: None (occurrence: None)
  Receive Date: 20120308
  Receipt Date: 20120228
  Transmission Date: 20120608
  Serious: No
  Sender: FDA-Public Use
  Company Number: US-JNJFOC-20120301021

PATIENT
  Sex: Female
  Weight: 52.16 kg

DRUGS (3)
  1. OXYCODONE HCL [Concomitant]
     Indication: PAIN
     Route: 065
  2. ZETIA [Concomitant]
     Indication: BLOOD CHOLESTEROL
     Route: 065
  3. DURAGESIC-100 [Suspect]
     Indication: PAIN
     Route: 062
     Dates: start: 20120101

REACTIONS (5)
  - APPLICATION SITE IRRITATION [None]
  - FIBROMYALGIA [None]
  - PRODUCT QUALITY ISSUE [None]
  - APPLICATION SITE ERYTHEMA [None]
  - WRONG TECHNIQUE IN DRUG USAGE PROCESS [None]
